FAERS Safety Report 8980484 (Version 2)
Quarter: 2013Q2

REPORT INFORMATION
  Report Type: Spontaneous
  Country: JP (occurrence: JP)
  Receive Date: 20121221
  Receipt Date: 20130501
  Transmission Date: 20140414
  Serious: Yes (Death)
  Sender: FDA-Public Use
  Company Number: JP-PFIZER INC-2012323137

PATIENT
  Age: 78 Year
  Sex: Male
  Weight: 50 kg

DRUGS (2)
  1. FOSPHENYTOIN SODIUM [Suspect]
     Indication: STATUS EPILEPTICUS
     Dosage: 750 MG, 1X/DAY(15 MG/KGX1/DAY)
     Route: 042
     Dates: start: 20121123, end: 20121123
  2. FOSPHENYTOIN SODIUM [Suspect]
     Dosage: 375 MG, 1X/DAY(7.5 MG/KGX1/DAY)
     Route: 042
     Dates: start: 20121124, end: 20121130

REACTIONS (2)
  - Pneumonia [Fatal]
  - Cardiac failure [Fatal]
